FAERS Safety Report 5133253-5 (Version None)
Quarter: 2006Q4

REPORT INFORMATION
  Report Type: 
  Country: None (occurrence: None)
  Receive Date: 20061018
  Receipt Date: 20061009
  Transmission Date: 20070319
  Serious: Yes (Hospitalization)
  Sender: FDA-Public Use
  Company Number: 2005172078

PATIENT
  Age: 38 Year
  Sex: Female

DRUGS (7)
  1. SULFASALAZINE [Suspect]
     Dosage: 500 MG (500 MG, 1 IN 1 D), ORAL
     Route: 048
     Dates: start: 20051010, end: 20051016
  2. ZITHROMAX [Suspect]
     Indication: PHARYNGITIS
     Dosage: DF, ORAL
     Route: 048
     Dates: start: 20051102, end: 20051104
  3. VOLTAREN [Suspect]
     Dosage: 50 MG (50 MG, 1 IN 1 D), ORAL
     Route: 048
     Dates: start: 20050501, end: 20051105
  4. COLCHINE OPIUM TIEMONIUM (COLCHINE, OPIUM, TIEMONIUM METHYLSULPHATE) [Suspect]
     Dosage: 1 DOSE-FORM (1 IN 1 D), ORAL
     Route: 048
     Dates: start: 20051010, end: 20051105
  5. VOLTAREN-XR [Suspect]
     Dosage: 100 MG (100 MG, 1 IN 1 D), ORAL
     Route: 048
     Dates: start: 20050501, end: 20051105
  6. INIPOMP (PANTOPRAZOLE) [Suspect]
     Dosage: 20 MG (20 MG, 1 IN 1 D), ORAL
     Route: 048
     Dates: start: 20051010, end: 20051108
  7. METHOTREXATE [Concomitant]

REACTIONS (5)
  - APHTHOUS STOMATITIS [None]
  - DERMATITIS BULLOUS [None]
  - GENITAL ULCERATION [None]
  - RASH PAPULAR [None]
  - SKIN REACTION [None]
